FAERS Safety Report 23864265 (Version 1)
Quarter: 2024Q2

REPORT INFORMATION
  Report Type: Spontaneous
  Country: US (occurrence: US)
  Receive Date: 20240516
  Receipt Date: 20240516
  Transmission Date: 20240716
  Serious: Yes (Hospitalization, Other)
  Sender: FDA-Public Use
  Company Number: US-CMP PHARMA-2024CMP00015

PATIENT
  Age: 34 Year
  Sex: Female

DRUGS (2)
  1. ISONIAZID [Suspect]
     Active Substance: ISONIAZID
     Indication: Latent tuberculosis
  2. PYRIDOXINE [Concomitant]
     Active Substance: PYRIDOXINE
     Indication: Latent tuberculosis

REACTIONS (3)
  - Drug-induced liver injury [Recovered/Resolved]
  - Abortion spontaneous [Recovered/Resolved]
  - Hepatorenal syndrome [Recovered/Resolved]
